FAERS Safety Report 9857891 (Version 2)
Quarter: 2018Q1

REPORT INFORMATION
  Report Type: Report from Study
  Country: US (occurrence: US)
  Receive Date: 20140131
  Receipt Date: 20180310
  Transmission Date: 20180509
  Serious: Yes (Other)
  Sender: FDA-Public Use
  Company Number: US-ROCHE-1342275

PATIENT
  Sex: Male
  Weight: 31.9 kg

DRUGS (12)
  1. ZOFRAN [Concomitant]
     Active Substance: ONDANSETRON HYDROCHLORIDE
     Route: 042
  2. NUTROPIN AQ [Suspect]
     Active Substance: SOMATROPIN
     Route: 058
     Dates: start: 20140128
  3. DETROL [Concomitant]
     Active Substance: TOLTERODINE TARTRATE
  4. NUTROPIN AQ [Suspect]
     Active Substance: SOMATROPIN
     Dosage: 0.4 MG/KG/WEEK
     Route: 058
     Dates: start: 20160105
  5. NORDITROPIN [Concomitant]
     Active Substance: SOMATROPIN
     Dosage: AT NIGHT
     Route: 058
  6. FISH OIL [Concomitant]
     Active Substance: FISH OIL
     Route: 048
  7. ARGININE [Concomitant]
     Active Substance: ARGININE
     Dosage: 0.5 G/KG
     Route: 042
  8. NORDITROPIN [Concomitant]
     Active Substance: SOMATROPIN
     Dosage: AT NIGHT
     Route: 058
     Dates: start: 20151111
  9. NUTROPIN AQ [Suspect]
     Active Substance: SOMATROPIN
     Indication: GROWTH HORMONE DEFICIENCY
     Route: 058
  10. FOCALIN [Concomitant]
     Active Substance: DEXMETHYLPHENIDATE HYDROCHLORIDE
  11. NUTROPIN AQ [Suspect]
     Active Substance: SOMATROPIN
     Route: 058
  12. GLUCAGON. [Concomitant]
     Active Substance: GLUCAGON
     Route: 042

REACTIONS (5)
  - Myalgia [Unknown]
  - Growth retardation [Unknown]
  - Decreased appetite [Unknown]
  - Viral infection [Unknown]
  - Weight decreased [Unknown]
